FAERS Safety Report 4783043-8 (Version None)
Quarter: 2005Q3

REPORT INFORMATION
  Report Type: 
  Country: None (occurrence: None)
  Receive Date: 20050914
  Receipt Date: 20050518
  Transmission Date: 20060218
  Serious: Yes (Other)
  Sender: FDA-Public Use
  Company Number: 163-20785-05050295

PATIENT
  Age: 57 Year
  Sex: Female

DRUGS (2)
  1. THALOMID [Suspect]
     Indication: MULTIPLE MYELOMA
     Dosage: 50 MG, DAILY, ORAL;  100 MG, DAILY, ORAL
     Route: 048
     Dates: start: 20050422, end: 20050428
  2. THALOMID [Suspect]
     Indication: MULTIPLE MYELOMA
     Dosage: 50 MG, DAILY, ORAL;  100 MG, DAILY, ORAL
     Route: 048
     Dates: start: 20050429, end: 20050501

REACTIONS (1)
  - ATRIAL FIBRILLATION [None]
